FAERS Safety Report 8377079-8 (Version None)
Quarter: 2012Q2

REPORT INFORMATION
  Report Type: 
  Country: None (occurrence: None)
  Receive Date: 20120522
  Receipt Date: 20120510
  Transmission Date: 20120825
  Serious: Yes (Hospitalization, Other)
  Sender: FDA-Public Use
  Company Number: US-ELI_LILLY_AND_COMPANY-US201203002797

PATIENT
  Sex: Male

DRUGS (2)
  1. FORTEO [Suspect]
     Dosage: 20 UG, QD
     Route: 065
  2. FORTEO [Suspect]
     Indication: OSTEOPOROSIS
     Dosage: 20 UG, QD
     Dates: start: 20120305

REACTIONS (10)
  - BLOOD TEST ABNORMAL [None]
  - MEMORY IMPAIRMENT [None]
  - SEPSIS [None]
  - MALAISE [None]
  - AMNESIA [None]
  - ABNORMAL BEHAVIOUR [None]
  - DISORIENTATION [None]
  - DEHYDRATION [None]
  - DYSSTASIA [None]
  - URINARY TRACT INFECTION [None]
